FAERS Safety Report 13343197 (Version 1)
Quarter: 2017Q1

REPORT INFORMATION
  Report Type: Other
  Country: DE (occurrence: DE)
  Receive Date: 20170316
  Receipt Date: 20170316
  Transmission Date: 20170428
  Serious: Yes (Hospitalization)
  Sender: FDA-Public Use
  Company Number: DE-SHIRE-DE201705406

PATIENT
  Age: 68 Year
  Sex: Female

DRUGS (5)
  1. KREON                              /00014701/ [Concomitant]
     Active Substance: PANCRELIPASE
     Indication: PRODUCT USED FOR UNKNOWN INDICATION
     Dosage: UNK (25000), 3X/DAY:TID(MORNING, NOON AND EVENING)
     Route: 065
  2. REVESTIVE [Suspect]
     Active Substance: TEDUGLUTIDE
     Indication: SHORT-BOWEL SYNDROME
     Dosage: 2.5 MG (DOSE HALVED), 1X/DAY:QD
     Route: 058
     Dates: start: 20151228
  3. AZATHIOPRINE                       /00001502/ [Concomitant]
     Active Substance: AZATHIOPRINE
     Indication: PRODUCT USED FOR UNKNOWN INDICATION
     Dosage: 50 MG, 3X/DAY:TID (MORNING, NOON AND EVENING)
     Route: 065
  4. BUDENOFALK [Concomitant]
     Active Substance: BUDESONIDE
     Indication: PRODUCT USED FOR UNKNOWN INDICATION
     Dosage: 3 MG, 1X/DAY:QD (1 MORNING)
     Route: 065
  5. PANTOZOL [Concomitant]
     Active Substance: PANTOPRAZOLE SODIUM
     Indication: PRODUCT USED FOR UNKNOWN INDICATION
     Dosage: 40 MG, 2X/DAY:BID (1 MORNING, 1 EVENING)
     Route: 065

REACTIONS (5)
  - Catheter site pain [Unknown]
  - Subileus [Unknown]
  - Flatulence [Unknown]
  - Complication associated with device [Unknown]
  - Faecal volume decreased [Unknown]

NARRATIVE: CASE EVENT DATE: 2017
